FAERS Safety Report 5905493-6 (Version None)
Quarter: 2008Q4

REPORT INFORMATION
  Report Type: 
  Country: None (occurrence: None)
  Receive Date: 20081002
  Receipt Date: 20080922
  Transmission Date: 20090506
  Serious: Yes (Hospitalization)
  Sender: FDA-Public Use
  Company Number: US-JNJFOC-20080905708

PATIENT
  Sex: Male
  Weight: 95.26 kg

DRUGS (9)
  1. DURAGESIC-100 [Suspect]
     Indication: ARTHRITIS
     Route: 062
  2. DURAGESIC-100 [Suspect]
     Indication: INTERVERTEBRAL DISC PROTRUSION
     Route: 062
  3. DURAGESIC-100 [Suspect]
     Indication: BACK PAIN
     Route: 062
  4. FENTANYL TRANSDERMAL SYSTEM [Suspect]
     Indication: ARTHRITIS
     Route: 062
  5. FENTANYL TRANSDERMAL SYSTEM [Suspect]
     Indication: INTERVERTEBRAL DISC PROTRUSION
     Route: 062
  6. FENTANYL TRANSDERMAL SYSTEM [Suspect]
     Indication: BACK PAIN
     Route: 062
  7. FENTANYL TRANSDERMAL SYSTEM [Suspect]
     Indication: INTERVERTEBRAL DISC PROTRUSION
     Route: 062
  8. FENTANYL TRANSDERMAL SYSTEM [Suspect]
     Indication: ARTHRITIS
     Route: 062
  9. FENTANYL TRANSDERMAL SYSTEM [Suspect]
     Indication: BACK PAIN
     Route: 062

REACTIONS (6)
  - DENTAL CARIES [None]
  - DRUG EFFECT DECREASED [None]
  - HYPERHIDROSIS [None]
  - MITRAL VALVE DISEASE [None]
  - TOOTH FRACTURE [None]
  - WRONG TECHNIQUE IN DRUG USAGE PROCESS [None]
